FAERS Safety Report 7105814-5 (Version None)
Quarter: 2010Q4

REPORT INFORMATION
  Report Type: 
  Country: None (occurrence: None)
  Receive Date: 20101110
  Receipt Date: 20101103
  Transmission Date: 20110411
  Serious: Yes (Other)
  Sender: FDA-Public Use
  Company Number: 2010MA002938

PATIENT
  Age: 62 Year
  Sex: Female

DRUGS (5)
  1. ALPRAZOLAM [Suspect]
     Dosage: 0.25 MG;Q6H;PO
     Route: 048
  2. CELEXA [Suspect]
     Indication: DEPRESSION
     Dates: start: 20100401
  3. BENADRYL [Concomitant]
  4. CLARITIN [Concomitant]
  5. DEPO-MEDROL [Concomitant]

REACTIONS (1)
  - DRUG WITHDRAWAL SYNDROME [None]
